FAERS Safety Report 10218201 (Version 1)
Quarter: 2014Q2

REPORT INFORMATION
  Report Type: Spontaneous
  Country: US (occurrence: US)
  Receive Date: 20140605
  Receipt Date: 20140605
  Transmission Date: 20141212
  Serious: No
  Sender: FDA-Public Use
  Company Number: US-BIOGENIDEC-2014BI048496

PATIENT
  Age: 53 Year
  Sex: Female

DRUGS (3)
  1. TECFIDERA [Suspect]
     Indication: MULTIPLE SCLEROSIS
     Route: 048
     Dates: start: 20131011
  2. BACLOFEN [Concomitant]
  3. AMPYRA [Concomitant]

REACTIONS (1)
  - Alopecia [Not Recovered/Not Resolved]
